FAERS Safety Report 5418955-5 (Version None)
Quarter: 2007Q3

REPORT INFORMATION
  Report Type: 
  Country: None (occurrence: None)
  Receive Date: 20070817
  Receipt Date: 20070809
  Transmission Date: 20080115
  Serious: Yes (Other)
  Sender: FDA-Public Use
  Company Number: JP-PFIZER INC-2007065579

PATIENT
  Age: 59 Year
  Sex: Female

DRUGS (4)
  1. EPIRUBICIN HYDROCHLORIDE [Suspect]
     Indication: BLADDER CANCER
  2. CISPLATIN [Suspect]
     Indication: BLADDER CANCER
  3. METHOTREXATE [Suspect]
     Indication: BLADDER CANCER
  4. DEXAMETHASONE 0.5MG TAB [Concomitant]
     Dosage: TEXT:4 MG/DAY

REACTIONS (3)
  - ANOREXIA [None]
  - FATIGUE [None]
  - HEPATITIS B [None]
